FAERS Safety Report 24622155 (Version 1)
Quarter: 2024Q4

REPORT INFORMATION
  Report Type: Spontaneous
  Country: CN (occurrence: CN)
  Receive Date: 20241114
  Receipt Date: 20241114
  Transmission Date: 20250114
  Serious: Yes (Hospitalization)
  Sender: BEIGENE
  Company Number: CN-BEIGENE-BGN-2024-018018

PATIENT

DRUGS (5)
  1. BRUKINSA [Suspect]
     Active Substance: ZANUBRUTINIB
     Indication: Chronic hepatitis B
     Dosage: 80 MILLIGRAM, BID
     Route: 048
     Dates: start: 20240922
  2. CYCLOPHOSPHAMIDE [Suspect]
     Active Substance: CYCLOPHOSPHAMIDE
     Indication: Chronic hepatitis B
     Dosage: 0.6 GRAM
     Route: 041
     Dates: start: 20240923
  3. VINCRISTINE SULFATE [Suspect]
     Active Substance: VINCRISTINE SULFATE
     Indication: Chronic hepatitis B
     Dosage: 1 MILLIGRAM
     Dates: start: 20240923
  4. DOXORUBICIN HYDROCHLORIDE [Suspect]
     Active Substance: DOXORUBICIN HYDROCHLORIDE
     Indication: Chronic hepatitis B
     Dosage: 30 MILLIGRAM
     Route: 041
     Dates: start: 20240924
  5. RUXOLITINIB [Suspect]
     Active Substance: RUXOLITINIB
     Indication: Chronic hepatitis B
     Dosage: 2 TABLETS, BID
     Route: 048
     Dates: start: 20240922

REACTIONS (2)
  - White blood cell count decreased [Unknown]
  - Off label use [Unknown]

NARRATIVE: CASE EVENT DATE: 20240929
